FAERS Safety Report 9681999 (Version 3)
Quarter: 2013Q4

REPORT INFORMATION
  Report Type: Report from Study
  Country: DE (occurrence: DE)
  Receive Date: 20131111
  Receipt Date: 20131206
  Transmission Date: 20140711
  Serious: Yes (Life-Threatening, Hospitalization, Other)
  Sender: FDA-Public Use
  Company Number: DE-B.I. PHARMACEUTICALS,INC./RIDGEFIELD-2013-BI-25016BI

PATIENT
  Age: 81 Year
  Sex: Female
  Weight: 62 kg

DRUGS (14)
  1. BIBW 2992 [Suspect]
     Indication: LUNG ADENOCARCINOMA
     Dosage: 40 MG
     Route: 048
     Dates: start: 20130722, end: 20130813
  2. TAZOBAC [Concomitant]
     Indication: INFECTION
     Dosage: 4.5 MG
     Route: 042
     Dates: start: 20130826, end: 20130903
  3. TILIDIN [Concomitant]
     Indication: PAIN
     Dosage: DAILY DOSE: 20 DROPS.
     Route: 048
     Dates: start: 20130912
  4. IRESSA [Concomitant]
     Indication: NON-SMALL CELL LUNG CANCER
     Dosage: 250 MG
     Route: 048
     Dates: start: 20130827, end: 20130910
  5. FORTECORTIN [Concomitant]
     Indication: METASTASES TO CENTRAL NERVOUS SYSTEM
     Dosage: 12 MG
     Route: 048
     Dates: start: 20130815, end: 20130819
  6. FORTECORTIN [Concomitant]
     Dosage: 4 MG
     Route: 048
     Dates: start: 20130820, end: 20130820
  7. FORTECORTIN [Concomitant]
     Dosage: 6 MG
     Route: 048
     Dates: start: 20130821, end: 20130823
  8. FORTECORTIN [Concomitant]
     Dosage: 4 MG
     Route: 048
     Dates: start: 20130824, end: 20130901
  9. FORTECORTIN [Concomitant]
     Dosage: 16 MG
     Route: 048
     Dates: start: 20130814, end: 20130814
  10. FRAGMIN P [Concomitant]
     Indication: THROMBOSIS PROPHYLAXIS
     Dosage: 2500 U
     Route: 058
     Dates: start: 20130814, end: 20130912
  11. POTASSIUM CHLORID [Concomitant]
     Indication: ELECTROLYTE SUBSTITUTION THERAPY
     Dosage: 20 MEQ
     Route: 042
     Dates: start: 20130814, end: 20130820
  12. POTASSIUM CHLORID [Concomitant]
     Dosage: 40 MEQ
     Route: 042
     Dates: start: 20130815, end: 20130815
  13. NOVALGIN [Concomitant]
     Indication: PAIN
     Dosage: DAILY DOSE:75 DROPS
     Route: 048
     Dates: start: 20130815, end: 20130822
  14. NOVALGIN [Concomitant]
     Dosage: DAILY DOSE:50 DROPS
     Route: 048
     Dates: start: 20130814, end: 20130814

REACTIONS (15)
  - Myocardial infarction [Recovered/Resolved]
  - Diarrhoea [Recovered/Resolved]
  - Grand mal convulsion [Recovered/Resolved]
  - Musculoskeletal pain [Not Recovered/Not Resolved]
  - Pneumonia [Recovered/Resolved]
  - Oral fungal infection [Not Recovered/Not Resolved]
  - Pleural effusion [Recovered/Resolved]
  - Blood potassium decreased [Recovered/Resolved]
  - Fear [Recovered/Resolved]
  - Asthenia [Not Recovered/Not Resolved]
  - Dry skin [Not Recovered/Not Resolved]
  - Anal fungal infection [Recovered/Resolved]
  - Prerenal failure [Recovered/Resolved]
  - Restlessness [Not Recovered/Not Resolved]
  - Anaemia [Not Recovered/Not Resolved]
